FAERS Safety Report 16492093 (Version 1)
Quarter: 2019Q2

REPORT INFORMATION
  Report Type: Spontaneous
  Country: US (occurrence: US)
  Receive Date: 20190628
  Receipt Date: 20190628
  Transmission Date: 20190711
  Serious: No
  Sender: FDA-Public Use
  Company Number: US-ASTRAZENECA-2019SE81195

PATIENT
  Sex: Female
  Weight: 64 kg

DRUGS (7)
  1. CETIRIZINE [Concomitant]
     Active Substance: CETIRIZINE HYDROCHLORIDE
     Indication: DRUG HYPERSENSITIVITY
     Dosage: UNKNOWN
     Route: 048
  2. SYMBICORT [Suspect]
     Active Substance: BUDESONIDE\FORMOTEROL FUMARATE DIHYDRATE
     Indication: ASTHMA
     Dosage: 80/4.5 MCG,1 PUFF BID
     Route: 055
     Dates: start: 20190509
  3. SYMBICORT [Suspect]
     Active Substance: BUDESONIDE\FORMOTEROL FUMARATE DIHYDRATE
     Indication: ASTHMA
     Dosage: 80/4.5 MCG, 2 PUFFS, BID
     Route: 055
     Dates: start: 20190422
  4. RHINOCORT [Suspect]
     Active Substance: BUDESONIDE
     Indication: OROPHARYNGEAL PAIN
     Route: 045
  5. VENTOLIN [Concomitant]
     Active Substance: ALBUTEROL SULFATE
     Indication: SUPPLEMENTATION THERAPY
     Dosage: AS REQUIRED
     Route: 055
  6. SINGULAIR [Concomitant]
     Active Substance: MONTELUKAST SODIUM
  7. ZAFIRLUKAST. [Concomitant]
     Active Substance: ZAFIRLUKAST
     Route: 048

REACTIONS (20)
  - Chest discomfort [Unknown]
  - Oropharyngeal pain [Not Recovered/Not Resolved]
  - Panic attack [Unknown]
  - Hypersensitivity [Unknown]
  - Palpitations [Unknown]
  - Wrong product administered [Unknown]
  - Irritable bowel syndrome [Unknown]
  - Fear [Unknown]
  - Intentional product misuse [Unknown]
  - Dyspnoea [Unknown]
  - Product use in unapproved indication [Unknown]
  - Tremor [Unknown]
  - Off label use [Unknown]
  - Mental impairment [Unknown]
  - Nervousness [Not Recovered/Not Resolved]
  - Presyncope [Unknown]
  - Lung disorder [Unknown]
  - Memory impairment [Unknown]
  - Vomiting [Unknown]
  - Anxiety [Not Recovered/Not Resolved]
